FAERS Safety Report 24398288 (Version 1)
Quarter: 2024Q4

REPORT INFORMATION
  Report Type: Spontaneous
  Country: US (occurrence: None)
  Receive Date: 20241004
  Receipt Date: 20241004
  Transmission Date: 20250114
  Serious: Yes (Disabling)
  Sender: Public
  Company Number: None

PATIENT
  Age: 67 Year
  Sex: Female
  Weight: 42.75 kg

DRUGS (9)
  1. ATORVASTATIN [Suspect]
     Active Substance: ATORVASTATIN
     Indication: Cerebrovascular accident
     Dosage: OTHER QUANTITY : 1 TABLET(S);?
     Route: 048
     Dates: start: 20240224, end: 20240923
  2. FLECAINIDE [Concomitant]
     Active Substance: FLECAINIDE
  3. CARVEDILOL [Concomitant]
     Active Substance: CARVEDILOL
  4. JANUMET [Concomitant]
     Active Substance: METFORMIN HYDROCHLORIDE\SITAGLIPTIN PHOSPHATE
  5. alphalopeic acid [Concomitant]
  6. VITAMINS [Concomitant]
     Active Substance: VITAMINS
  7. MAGNESIUM [Concomitant]
     Active Substance: MAGNESIUM
  8. pepsid ac [Concomitant]
  9. apple cider vinegar pill [Concomitant]

REACTIONS (7)
  - Psoriatic arthropathy [None]
  - Constipation [None]
  - Haemorrhoids [None]
  - Arthralgia [None]
  - Migraine [None]
  - Anxiety [None]
  - Insomnia [None]
